FAERS Safety Report 15358612 (Version 1)
Quarter: 2018Q3

REPORT INFORMATION
  Report Type: Spontaneous
  Country: BR (occurrence: BR)
  Receive Date: 20180906
  Receipt Date: 20180906
  Transmission Date: 20181010
  Serious: Yes (Death, Hospitalization)
  Sender: FDA-Public Use
  Company Number: BR-JNJFOC-20180843056

PATIENT

DRUGS (1)
  1. HUMAN CLOTTABLE PROTEIN/HUMAN THROMBIN [Suspect]
     Active Substance: FIBRINOGEN HUMAN\THROMBIN HUMAN
     Indication: TISSUE SEALING
     Route: 061

REACTIONS (7)
  - Cerebrospinal fluid leakage [Unknown]
  - Eye disorder [Unknown]
  - Cerebrospinal fistula [Unknown]
  - Off label use [Unknown]
  - Meningitis [Fatal]
  - Epistaxis [Unknown]
  - Diabetes insipidus [Unknown]
